FAERS Safety Report 19198514 (Version 5)
Quarter: 2021Q3

REPORT INFORMATION
  Report Type: Report from Study
  Country: None (occurrence: CO)
  Receive Date: 20210430
  Receipt Date: 20210913
  Transmission Date: 20211014
  Serious: Yes (Other)
  Sender: FDA-Public Use
  Company Number: CO-ABBVIE-21K-036-3885108-00

PATIENT
  Age: 60 Year
  Sex: Female
  Weight: 68 kg

DRUGS (2)
  1. HUMIRA [Suspect]
     Active Substance: ADALIMUMAB
     Route: 058
     Dates: start: 2021
  2. HUMIRA [Suspect]
     Active Substance: ADALIMUMAB
     Indication: COLITIS ULCERATIVE
     Route: 058
     Dates: start: 20180712, end: 20210330

REACTIONS (10)
  - Dizziness postural [Recovering/Resolving]
  - Ear infection [Recovering/Resolving]
  - Herpes zoster [Recovering/Resolving]
  - Vertigo [Recovering/Resolving]
  - Dysarthria [Recovering/Resolving]
  - Pruritus [Recovering/Resolving]
  - Gait disturbance [Recovering/Resolving]
  - Bell^s palsy [Recovering/Resolving]
  - Paraesthesia [Recovering/Resolving]
  - Rash [Recovering/Resolving]

NARRATIVE: CASE EVENT DATE: 20210405
